FAERS Safety Report 12724019 (Version 2)
Quarter: 2016Q3

REPORT INFORMATION
  Report Type: Report from Study
  Country: SG (occurrence: SG)
  Receive Date: 20160908
  Receipt Date: 20160926
  Transmission Date: 20161109
  Serious: Yes (Hospitalization)
  Sender: FDA-Public Use
  Company Number: PHHO2016SG010089

PATIENT
  Age: 52 Year
  Sex: Female
  Weight: 58.3 kg

DRUGS (8)
  1. GLIPIZIDE. [Concomitant]
     Active Substance: GLIPIZIDE
     Indication: DIABETES MELLITUS
     Dosage: 5/2.5MG
     Route: 065
  2. CARVELOL [Concomitant]
     Indication: SUPRAVENTRICULAR TACHYCARDIA
     Dosage: UNK
     Route: 065
  3. AMN107 [Suspect]
     Active Substance: NILOTINIB
     Indication: CHRONIC MYELOID LEUKAEMIA
     Dosage: 300 MG, BID
     Route: 048
     Dates: start: 200710
  4. LISINOPRIL. [Concomitant]
     Active Substance: LISINOPRIL
     Indication: CARDIOVASCULAR DISORDER
     Dosage: 5 MG OM
     Route: 048
  5. ATORVASTATIN [Concomitant]
     Active Substance: ATORVASTATIN
     Indication: CARDIOVASCULAR DISORDER
     Dosage: 20 MG,(O.N)
     Route: 065
  6. ASPIRIN. [Concomitant]
     Active Substance: ASPIRIN
     Indication: CARDIOVASCULAR DISORDER
     Dosage: 25 MG OM
     Route: 065
  7. EMPAGLIFLOZIN [Concomitant]
     Active Substance: EMPAGLIFLOZIN
     Indication: CARDIOVASCULAR DISORDER
     Dosage: 25 MG
     Route: 048
  8. CLOPIDOGREL [Concomitant]
     Active Substance: CLOPIDOGREL BISULFATE
     Indication: CARDIOVASCULAR DISORDER
     Dosage: 75 MG OM
     Route: 048

REACTIONS (2)
  - Upper respiratory tract infection [Recovered/Resolved]
  - Supraventricular tachycardia [Recovered/Resolved]

NARRATIVE: CASE EVENT DATE: 20160701
